FAERS Safety Report 20507313 (Version 1)
Quarter: 2022Q1

REPORT INFORMATION
  Report Type: Spontaneous
  Country: US (occurrence: None)
  Receive Date: 20220222
  Receipt Date: 20220222
  Transmission Date: 20220423
  Serious: No
  Sender: FDA-Public Use
  Company Number: None

PATIENT
  Age: 37 Year
  Sex: Female
  Weight: 57.15 kg

DRUGS (1)
  1. PROGESTERONE INJECTION USP [Suspect]
     Active Substance: PROGESTERONE
     Indication: In vitro fertilisation
     Dosage: OTHER QUANTITY : 10 INJECTION(S);?FREQUENCY : DAILY;?
     Route: 030
     Dates: start: 20220209, end: 20220222

REACTIONS (2)
  - Injection site rash [None]
  - Injection site urticaria [None]

NARRATIVE: CASE EVENT DATE: 20220217
